FAERS Safety Report 5505668-4 (Version None)
Quarter: 2007Q4

REPORT INFORMATION
  Report Type: 
  Country: None (occurrence: None)
  Receive Date: 20071102
  Receipt Date: 20071025
  Transmission Date: 20080405
  Serious: Yes (Hospitalization, Other)
  Sender: FDA-Public Use
  Company Number: US-ABBOTT-07P-163-0422271-00

PATIENT
  Sex: Female
  Weight: 104.5 kg

DRUGS (2)
  1. HUMIRA [Suspect]
     Indication: DRUG USE FOR UNKNOWN INDICATION
     Route: 058
     Dates: start: 20060801, end: 20070801
  2. HUMIRA [Suspect]
     Route: 058
     Dates: start: 20050101, end: 20060801

REACTIONS (4)
  - CELLULITIS [None]
  - PERIPHERAL EMBOLISM [None]
  - PNEUMONIA [None]
  - PULMONARY EMBOLISM [None]
